FAERS Safety Report 23075099 (Version 1)
Quarter: 2023Q4

REPORT INFORMATION
  Report Type: Spontaneous
  Country: CA (occurrence: CA)
  Receive Date: 20231017
  Receipt Date: 20231017
  Transmission Date: 20240110
  Serious: Yes (Other)
  Sender: FDA-Public Use
  Company Number: CA-PFIZER INC-202300325039

PATIENT
  Age: 70 Year
  Sex: Female

DRUGS (2)
  1. METHOTREXATE SODIUM [Suspect]
     Active Substance: METHOTREXATE SODIUM
     Dosage: 1 DF UNKNOWN DOSE, INJECTIONS
     Route: 058
  2. ABRILADA [Concomitant]
     Active Substance: ADALIMUMAB-AFZB
     Indication: Crohn^s disease
     Dosage: W0 160MG, W2 80MG, AND THEN 40MG EVERY OTHER WEEK
     Route: 058
     Dates: start: 20230720

REACTIONS (6)
  - Lyme disease [Unknown]
  - Arthropod bite [Unknown]
  - Immunodeficiency [Unknown]
  - Injection site bruising [Unknown]
  - Injection site discolouration [Unknown]
  - Off label use [Unknown]
